FAERS Safety Report 5595865-4 (Version None)
Quarter: 2008Q1

REPORT INFORMATION
  Report Type: 
  Country: None (occurrence: None)
  Receive Date: 20080118
  Receipt Date: 20080111
  Transmission Date: 20080703
  Serious: Yes (Hospitalization)
  Sender: FDA-Public Use
  Company Number: FR-MERCK-0801FRA00050

PATIENT
  Age: 85 Year
  Sex: Female

DRUGS (4)
  1. NOROXIN [Suspect]
     Indication: URINARY TRACT INFECTION
     Route: 048
     Dates: start: 20071031, end: 20071116
  2. PANTOPRAZOLE SODIUM [Suspect]
     Route: 048
     Dates: start: 20071110, end: 20071121
  3. NICARDIPINE HYDROCHLORIDE [Suspect]
     Indication: HYPERTENSION
     Route: 048
     Dates: start: 20071110, end: 20071113
  4. NICARDIPINE HYDROCHLORIDE [Suspect]
     Route: 048
     Dates: start: 20071114, end: 20071121

REACTIONS (2)
  - CHOLESTASIS [None]
  - CYTOLYTIC HEPATITIS [None]
